FAERS Safety Report 16007995 (Version 1)
Quarter: 2019Q1

REPORT INFORMATION
  Report Type: Report from Study
  Country: IT (occurrence: IT)
  Receive Date: 20190226
  Receipt Date: 20190226
  Transmission Date: 20190418
  Serious: Yes (Other)
  Sender: FDA-Public Use
  Company Number: IT-PFIZER INC-2019081757

PATIENT
  Age: 57 Year
  Sex: Male
  Weight: 100 kg

DRUGS (14)
  1. PARICALCITOL. [Concomitant]
     Active Substance: PARICALCITOL
     Dosage: 2 UG, UNK
     Route: 048
  2. MAALOX TC [Concomitant]
     Dosage: 2 DF, UNK
     Route: 048
  3. PANTOPRAZOLE [Concomitant]
     Active Substance: PANTOPRAZOLE
     Dosage: 40 MG, UNK
     Route: 048
  4. SODIUM HYDROGEN CARBONATE [Concomitant]
     Active Substance: SODIUM BICARBONATE
     Dosage: 2000 MG, UNK
  5. GENTAMICIN SULFATE. [Suspect]
     Active Substance: GENTAMICIN SULFATE
     Indication: CELLULITIS
     Dosage: 480 MG, WEEKLY
     Route: 042
     Dates: start: 20180501, end: 20180523
  6. ATENOLOL. [Concomitant]
     Active Substance: ATENOLOL
     Dosage: 25 MG, UNK
     Route: 048
  7. ENOXAPARIN SODIUM. [Concomitant]
     Active Substance: ENOXAPARIN SODIUM
     Dosage: 4000 KIU, UNK
     Route: 058
  8. PREGABALIN. [Concomitant]
     Active Substance: PREGABALIN
     Dosage: 75 MG, UNK
     Route: 048
  9. KAYEXALATE [Concomitant]
     Active Substance: SODIUM POLYSTYRENE SULFONATE
     Dosage: 1 DF, UNK
     Route: 048
  10. COLECALCIFEROL [Concomitant]
     Active Substance: CHOLECALCIFEROL
     Dosage: 10 GTT, UNK
     Route: 048
  11. EPOETIN THETA [Concomitant]
     Active Substance: ERYTHROPOIETIN
     Dosage: UNK
  12. SEVELAMER [Concomitant]
     Active Substance: SEVELAMER
     Dosage: 3200 MG, 1X/DAY
     Route: 048
  13. VANCOMYCIN HCL [Suspect]
     Active Substance: VANCOMYCIN HYDROCHLORIDE
     Indication: CELLULITIS
     Dosage: 1500 MG, WEEKLY
     Dates: start: 20180501, end: 20180523
  14. CINACALCET HYDROCHLORIDE. [Concomitant]
     Active Substance: CINACALCET HYDROCHLORIDE
     Dosage: 60 MG, UNK
     Route: 048

REACTIONS (3)
  - Balance disorder [Recovered/Resolved with Sequelae]
  - Product use issue [Unknown]
  - Vestibular disorder [Recovered/Resolved with Sequelae]

NARRATIVE: CASE EVENT DATE: 20180501
